FAERS Safety Report 5759981-6 (Version None)
Quarter: 2008Q2

REPORT INFORMATION
  Report Type: 
  Country: None (occurrence: None)
  Receive Date: 20080605
  Receipt Date: 20080519
  Transmission Date: 20081010
  Serious: No
  Sender: FDA-Public Use
  Company Number: US-BAYER-200815762NA

PATIENT
  Age: 58 Year
  Sex: Female
  Weight: 57 kg

DRUGS (1)
  1. MAGNEVIST PHARMACY BULK PACKAGE 50ML [Suspect]
     Indication: NUCLEAR MAGNETIC RESONANCE IMAGING
     Dosage: TOTAL DAILY DOSE: 20 ML
     Route: 042
     Dates: start: 20080228, end: 20080228

REACTIONS (2)
  - BLISTER [None]
  - PRURITUS [None]
